FAERS Safety Report 10421185 (Version 5)
Quarter: 2014Q4

REPORT INFORMATION
  Report Type: Spontaneous
  Country: US (occurrence: US)
  Receive Date: 20140830
  Receipt Date: 20141117
  Transmission Date: 20150528
  Serious: No
  Sender: FDA-Public Use
  Company Number: US-009507513-1408USA014601

PATIENT
  Age: 20 Year
  Sex: Female
  Weight: 62.13 kg

DRUGS (1)
  1. IMPLANON [Suspect]
     Active Substance: ETONOGESTREL
     Dosage: 68, 1 ROD
     Route: 059
     Dates: start: 20121217

REACTIONS (4)
  - Device dislocation [Not Recovered/Not Resolved]
  - Drug dose omission [Unknown]
  - Medical device complication [Not Recovered/Not Resolved]
  - No adverse event [Unknown]

NARRATIVE: CASE EVENT DATE: 201303
